FAERS Safety Report 18497819 (Version 1)
Quarter: 2020Q4

REPORT INFORMATION
  Report Type: Spontaneous
  Country: IT (occurrence: IT)
  Receive Date: 20201112
  Receipt Date: 20201112
  Transmission Date: 20210114
  Serious: Yes (Other)
  Sender: FDA-Public Use
  Company Number: IT-MYLANLABS-2020M1093838

PATIENT
  Age: 6 Month
  Sex: Male

DRUGS (2)
  1. ONDANSETRON [Suspect]
     Active Substance: ONDANSETRON
     Indication: ENTEROCOLITIS
     Dosage: UNKNOWN
     Route: 065
  2. RANITIDINE. [Suspect]
     Active Substance: RANITIDINE
     Indication: PRODUCT USED FOR UNKNOWN INDICATION
     Dosage: UNK, (UNKNOWN)
     Route: 065

REACTIONS (4)
  - Metabolic acidosis [Unknown]
  - Drug effective for unapproved indication [Unknown]
  - Diarrhoea [Unknown]
  - Off label use [Unknown]
